FAERS Safety Report 18995311 (Version 1)
Quarter: 2021Q1

REPORT INFORMATION
  Report Type: Spontaneous
  Country: US (occurrence: US)
  Receive Date: 20210310
  Receipt Date: 20210310
  Transmission Date: 20210420
  Serious: No
  Sender: FDA-Public Use
  Company Number: US-JNJFOC-20210301751

PATIENT
  Sex: Male
  Weight: 104.42 kg

DRUGS (1)
  1. STELARA [Suspect]
     Active Substance: USTEKINUMAB
     Indication: PSORIASIS
     Route: 058
     Dates: start: 2019

REACTIONS (3)
  - Tooth infection [Recovering/Resolving]
  - Dental restoration failure [Unknown]
  - Dental prosthesis placement [Recovering/Resolving]

NARRATIVE: CASE EVENT DATE: 2019
